FAERS Safety Report 7432601-0 (Version None)
Quarter: 2011Q2

REPORT INFORMATION
  Report Type: 
  Country: None (occurrence: None)
  Receive Date: 20110422
  Receipt Date: 20110415
  Transmission Date: 20111010
  Serious: Yes (Hospitalization)
  Sender: FDA-Public Use
  Company Number: FR-PFIZER INC-2011082887

PATIENT
  Age: 9 Year
  Sex: Male

DRUGS (5)
  1. ONCOVIN [Suspect]
     Dosage: UNK
     Dates: start: 20101101, end: 20101101
  2. HOLOXAN [Suspect]
     Dosage: UNK
     Dates: start: 20101101, end: 20101101
  3. AVASTIN [Suspect]
     Dosage: UNK
     Dates: start: 20101101, end: 20101101
  4. ACTINOMYCIN D [Suspect]
     Dosage: UNK
     Dates: start: 20101101, end: 20101101
  5. ADRIAMYCIN PFS [Suspect]
     Dosage: UNK
     Dates: start: 20101101, end: 20101101

REACTIONS (1)
  - PANCREATITIS [None]
